FAERS Safety Report 9516860 (Version 1)
Quarter: 2013Q1

REPORT INFORMATION
  Report Type: Spontaneous
  Country: US (occurrence: None)
  Receive Date: 20130305
  Receipt Date: 20130305
  Transmission Date: 20140127
  Serious: Yes (Other)
  Sender: FDA-Public Use
  Company Number: 163-21880-12081202

PATIENT
  Age: 62 Year
  Sex: Male

DRUGS (20)
  1. REVLIMID [Suspect]
     Indication: PLASMA CELL MYELOMA
     Dosage: 10 MG, 21 IN 21 D, PO
     Route: 048
     Dates: start: 20090702
  2. AMBIEN (ZOLPIDEM TARTRATE) [Concomitant]
  3. AMITRIPTYLINE (AMITRIPTYLINE) [Concomitant]
  4. ASPIRIN (ACETYLSALICYLIC ACID) [Concomitant]
  5. ATIVAN (LORAZEPAM) [Concomitant]
  6. CELEBREX (CELECOXIB) [Concomitant]
  7. CELEXA (CITALOPRAM HYDROBROMIDE) [Concomitant]
  8. CENTRUM (CENTRUM) [Concomitant]
  9. DUONEB (COMBIVENT) [Concomitant]
  10. FOLIC ACID (FOLIC ACID) [Concomitant]
  11. LIDODERM (LIDOCAINE) [Concomitant]
  12. LORATIDINE [Concomitant]
  13. OXYCODONE (OXYCODONE) [Concomitant]
  14. OXYCODONE (OXYCODONE HYDROCHLORIDE) [Concomitant]
  15. PRILOSEC [Concomitant]
  16. VITAMIN B12 (CYANOCOBALAMIN) [Concomitant]
  17. VITAMIN B6 (PYRIDOXINE HYDROCHLORIDE) [Concomitant]
  18. XALATAN (LATANOPROST) [Concomitant]
  19. ALBUTEROL (SALBUTAMOL) [Concomitant]
  20. XANAX (ALPRAZOLAM) [Concomitant]

REACTIONS (2)
  - Bronchitis [None]
  - White blood cell count decreased [None]
